FAERS Safety Report 5128734-4 (Version None)
Quarter: 2006Q4

REPORT INFORMATION
  Report Type: 
  Country: None (occurrence: None)
  Receive Date: 20061011
  Receipt Date: 20061002
  Transmission Date: 20070319
  Serious: Yes (Other)
  Sender: FDA-Public Use
  Company Number: 2006110786

PATIENT
  Age: 47 Year
  Sex: Female

DRUGS (3)
  1. GEODON [Suspect]
     Indication: SCHIZOPHRENIA
     Dosage: 160 MG (1 IN 1 D)
     Dates: start: 20040201
  2. ZOLOFT [Concomitant]
  3. ZYPREXA [Concomitant]

REACTIONS (1)
  - TARDIVE DYSKINESIA [None]
